FAERS Safety Report 8905325 (Version 1)
Quarter: 2012Q4

REPORT INFORMATION
  Report Type: 
  Country: GB (occurrence: GB)
  Receive Date: 20121113
  Receipt Date: 20121113
  Transmission Date: 20130627
  Serious: Yes (Other)
  Sender: FDA-Public Use
  Company Number: GB-009507513-1211GBR004767

PATIENT
  Sex: Male

DRUGS (1)
  1. LOSARTAN POTASSIUM [Suspect]
     Dosage: 50 mg, qd
     Dates: start: 2008

REACTIONS (3)
  - Feeling abnormal [Unknown]
  - Syncope [Unknown]
  - Dizziness [Unknown]
